FAERS Safety Report 6129730-0 (Version None)
Quarter: 2009Q1

REPORT INFORMATION
  Report Type: 
  Country: None (occurrence: None)
  Receive Date: 20090324
  Receipt Date: 20090319
  Transmission Date: 20090719
  Serious: Yes (Life-Threatening, Disabling, Other)
  Sender: FDA-Public Use
  Company Number: A0774014A

PATIENT
  Age: 46 Year
  Sex: Male

DRUGS (5)
  1. WELLBUTRIN XL [Suspect]
     Indication: DEPRESSION
     Dosage: 300MG PER DAY
     Route: 048
  2. XANAX [Concomitant]
  3. LOMOTIL [Concomitant]
  4. TYLENOL W/ CODEINE NO. 3 [Concomitant]
  5. VITAMINS [Concomitant]

REACTIONS (4)
  - DRUG ABUSE [None]
  - DRUG ADMINISTRATION ERROR [None]
  - DRUG INEFFECTIVE [None]
  - MEDICATION RESIDUE [None]
